FAERS Safety Report 11457093 (Version 1)
Quarter: 2015Q3

REPORT INFORMATION
  Report Type: Spontaneous
  Country: US (occurrence: None)
  Receive Date: 20150902
  Receipt Date: 20150902
  Transmission Date: 20151125
  Serious: Yes (Death, Hospitalization)
  Sender: FDA-Public Use
  Company Number: INS201508-000359

PATIENT
  Age: 87 Year
  Sex: Male
  Weight: 71.66 kg

DRUGS (1)
  1. SUBSYS [Suspect]
     Active Substance: FENTANYL
     Indication: CANCER PAIN
     Dosage: 1-2 SPRAYS 4 HOURS AS NEEDED
     Dates: start: 20130911

REACTIONS (1)
  - Death [None]

NARRATIVE: CASE EVENT DATE: 20140111
